FAERS Safety Report 21037726 (Version 1)
Quarter: 2022Q3

REPORT INFORMATION
  Report Type: Spontaneous
  Country: US (occurrence: US)
  Receive Date: 20220704
  Receipt Date: 20220704
  Transmission Date: 20221027
  Serious: Yes (Life-Threatening, Hospitalization, Other)
  Sender: FDA-Public Use
  Company Number: US-MLMSERVICE-20220615-3616782-2

PATIENT
  Age: 23 Year
  Sex: Male

DRUGS (2)
  1. CLOZAPINE [Suspect]
     Active Substance: CLOZAPINE
     Indication: Bipolar I disorder
     Dosage: 200 MILLIGRAM, ONCE A DAY (AT BEDTIME)
     Route: 065
  2. PANTOPRAZOLE [Concomitant]
     Active Substance: PANTOPRAZOLE
     Dosage: 40 MILLIGRAM, ONCE A DAY
     Route: 065

REACTIONS (9)
  - Iatrogenic injury [Recovering/Resolving]
  - Oxygen saturation decreased [Recovering/Resolving]
  - Drug dose titration not performed [Recovered/Resolved]
  - Somnolence [Recovering/Resolving]
  - Salivary hypersecretion [Unknown]
  - Blood pressure systolic normal [Recovering/Resolving]
  - Fall [Unknown]
  - Mental status changes [Recovering/Resolving]
  - Toxicity to various agents [None]
